FAERS Safety Report 4293788-4 (Version None)
Quarter: 2004Q1

REPORT INFORMATION
  Report Type: 
  Country: None (occurrence: None)
  Receive Date: 20040210
  Receipt Date: 20040128
  Transmission Date: 20041129
  Serious: Yes (Hospitalization)
  Sender: FDA-Public Use
  Company Number: 2004005957

PATIENT
  Age: 93 Year
  Sex: Male

DRUGS (10)
  1. AMLODIPINE [Suspect]
     Indication: HYPERTENSION
     Dosage: 10 MG (DAILY), ORAL
     Route: 048
  2. DOXAZOSIN MESYLATE [Concomitant]
  3. HYDROCHLOROTHIAZIDE [Concomitant]
  4. RANITIDINE HYDROCHLORIDE [Concomitant]
  5. LOSARTAN POTASSIUM (LOSARTAN POTASSIUM) [Concomitant]
  6. NITROGLYCERIN [Concomitant]
  7. VANCOMYCIN [Concomitant]
  8. METHYLPREDNISOLONE [Concomitant]
  9. HEPARIN SODIUM [Concomitant]
  10. HALOPERIDOL [Concomitant]

REACTIONS (2)
  - HYPERTENSIVE CRISIS [None]
  - RESPIRATORY ARREST [None]
